FAERS Safety Report 19047595 (Version 2)
Quarter: 2021Q3

REPORT INFORMATION
  Report Type: Spontaneous
  Country: US (occurrence: US)
  Receive Date: 20210323
  Receipt Date: 20210920
  Transmission Date: 20211014
  Serious: Yes (Hospitalization, Other)
  Sender: FDA-Public Use
  Company Number: US-GILEAD-2021-0522295

PATIENT
  Sex: Male
  Weight: 81.65 kg

DRUGS (7)
  1. TRUVADA [Suspect]
     Active Substance: EMTRICITABINE\TENOFOVIR DISOPROXIL FUMARATE
     Dosage: UNK
     Route: 048
     Dates: start: 201206, end: 201305
  2. STRIBILD [Suspect]
     Active Substance: COBICISTAT\ELVITEGRAVIR\EMTRICITABINE\TENOFOVIR DISOPROXIL FUMARATE
     Dosage: UNK
     Route: 048
     Dates: start: 201305, end: 201702
  3. TRIUMEQ [Concomitant]
     Active Substance: ABACAVIR SULFATE\DOLUTEGRAVIR SODIUM\LAMIVUDINE
  4. STRIBILD [Suspect]
     Active Substance: COBICISTAT\ELVITEGRAVIR\EMTRICITABINE\TENOFOVIR DISOPROXIL FUMARATE
     Indication: HIV INFECTION
     Dosage: UNK
     Route: 048
     Dates: start: 2012
  5. TRUVADA [Suspect]
     Active Substance: EMTRICITABINE\TENOFOVIR DISOPROXIL FUMARATE
     Indication: HIV INFECTION
     Dosage: UNK
     Route: 048
     Dates: start: 2012
  6. GABAPENTIN. [Concomitant]
     Active Substance: GABAPENTIN
  7. ISENTRESS [Concomitant]
     Active Substance: RALTEGRAVIR POTASSIUM

REACTIONS (23)
  - Bone density decreased [Not Recovered/Not Resolved]
  - Emotional distress [Unknown]
  - Dysstasia [Unknown]
  - Contusion [Unknown]
  - Dislocation of vertebra [Unknown]
  - Spinal compression fracture [Not Recovered/Not Resolved]
  - Sciatica [Unknown]
  - Spinal fracture [Unknown]
  - Anxiety [Not Recovered/Not Resolved]
  - Pain [Not Recovered/Not Resolved]
  - Back pain [Unknown]
  - Weight bearing difficulty [Unknown]
  - Seizure [Unknown]
  - Sleep deficit [Unknown]
  - Schizophrenia [Not Recovered/Not Resolved]
  - Anhedonia [Not Recovered/Not Resolved]
  - Gait disturbance [Unknown]
  - Osteoporosis [Unknown]
  - Multiple fractures [Unknown]
  - Skeletal injury [Unknown]
  - Head injury [Unknown]
  - Personality disorder [Unknown]
  - Balance disorder [Unknown]

NARRATIVE: CASE EVENT DATE: 2013
